FAERS Safety Report 14909887 (Version 5)
Quarter: 2019Q1

REPORT INFORMATION
  Report Type: Report from Study
  Country: US (occurrence: US)
  Receive Date: 20180517
  Receipt Date: 20190121
  Transmission Date: 20190417
  Serious: Yes (Hospitalization, Other)
  Sender: FDA-Public Use
  Company Number: PHEH2018US018287

PATIENT
  Sex: Male

DRUGS (1)
  1. ENTRESTO [Suspect]
     Active Substance: SACUBITRIL\VALSARTAN
     Indication: CARDIAC FAILURE
     Dosage: UNK
     Route: 048

REACTIONS (10)
  - Coronary artery disease [Unknown]
  - Peripheral swelling [Unknown]
  - Fall [Unknown]
  - Ejection fraction decreased [Unknown]
  - Hypoacusis [Unknown]
  - Poor peripheral circulation [Unknown]
  - Pain [Unknown]
  - Rib fracture [Unknown]
  - Fatigue [Unknown]
  - Concomitant disease aggravated [Unknown]
